FAERS Safety Report 24787970 (Version 1)
Quarter: 2024Q4

REPORT INFORMATION
  Report Type: Spontaneous
  Country: DE (occurrence: DE)
  Receive Date: 20241230
  Receipt Date: 20241230
  Transmission Date: 20250115
  Serious: Yes (Hospitalization)
  Sender: SANOFI AVENTIS
  Company Number: DE-DCGMA-24204325

PATIENT
  Age: 67 Year
  Sex: Male
  Weight: 48 kg

DRUGS (7)
  1. OXALIPLATIN [Suspect]
     Active Substance: OXALIPLATIN
     Indication: Colorectal cancer
     Dosage: 165.62 MG
     Route: 042
     Dates: start: 20241105
  2. FLUOROURACIL [Concomitant]
     Active Substance: FLUOROURACIL
     Dosage: 662.47 MG
     Route: 042
  3. FLUOROURACIL [Concomitant]
     Active Substance: FLUOROURACIL
     Dosage: 3974.81 MG
     Route: 042
  4. LEUCOVORIN [Concomitant]
     Active Substance: LEUCOVORIN\LEUCOVORIN CALCIUM
     Dosage: 662.47 MG
     Route: 042
  5. ALOXI [Concomitant]
     Active Substance: PALONOSETRON HYDROCHLORIDE
     Dosage: UNK
     Route: 048
  6. Jonosteril [Concomitant]
     Dosage: 500 ML
     Route: 042
  7. GRANISETRON [Concomitant]
     Active Substance: GRANISETRON
     Dosage: 1 MG
     Route: 042

REACTIONS (3)
  - Pallor [Recovered/Resolved]
  - Bradykinesia [Recovered/Resolved]
  - Asthenia [Recovered/Resolved]

NARRATIVE: CASE EVENT DATE: 20241105
